FAERS Safety Report 5574078-6 (Version None)
Quarter: 2007Q4

REPORT INFORMATION
  Report Type: 
  Country: None (occurrence: None)
  Receive Date: 20071221
  Receipt Date: 20071207
  Transmission Date: 20080405
  Serious: Yes (Hospitalization)
  Sender: FDA-Public Use
  Company Number: DSA_30959_2007

PATIENT
  Age: 69 Year
  Sex: Male

DRUGS (6)
  1. ENALAPRIL MALEATE [Suspect]
     Indication: DRUG USE FOR UNKNOWN INDICATION
     Dosage: (5 MG QD ORAL)
     Route: 048
  2. BUFFERIN [Concomitant]
  3. NORVASC /00972402/ [Concomitant]
  4. GASTER /00706001/ [Concomitant]
  5. BEZATOL SR [Concomitant]
  6. ZYLORIC /00003301/ [Concomitant]

REACTIONS (2)
  - ALCOHOLIC PANCREATITIS [None]
  - BACK PAIN [None]
